FAERS Safety Report 15640732 (Version 1)
Quarter: 2018Q4

REPORT INFORMATION
  Report Type: Report from Study
  Country: US (occurrence: US)
  Receive Date: 20181120
  Receipt Date: 20181120
  Transmission Date: 20190205
  Serious: Yes (Hospitalization, Disabling, Other)
  Sender: FDA-Public Use
  Company Number: US-ASTRAZENECA-2018SF36053

PATIENT
  Age: 670 Month
  Sex: Female

DRUGS (25)
  1. LISINOPRIL HCTZ [Suspect]
     Active Substance: HYDROCHLOROTHIAZIDE\LISINOPRIL
     Indication: BLOOD PRESSURE ABNORMAL
     Dosage: LOWER DOSE
     Route: 048
  2. LISINOPRIL HCTZ [Suspect]
     Active Substance: HYDROCHLOROTHIAZIDE\LISINOPRIL
     Indication: BLOOD PRESSURE ABNORMAL
     Dosage: 20/12.5 MG, TWO TABLETS
     Route: 048
  3. OMEPRAZOLE. [Suspect]
     Active Substance: OMEPRAZOLE
     Indication: GASTRIC DISORDER
     Route: 048
     Dates: start: 2013
  4. ASPIRIN. [Concomitant]
     Active Substance: ASPIRIN
     Indication: ADJUVANT THERAPY
     Route: 048
  5. CALCIUM WITH D 3 [Concomitant]
     Dosage: 500 UNITS DAILY
  6. MAGNESIUM [Concomitant]
     Active Substance: MAGNESIUM
     Dosage: 250 UNITS
  7. BRILINTA [Suspect]
     Active Substance: TICAGRELOR
     Indication: VASCULAR OCCLUSION
     Dosage: 90.0MG UNKNOWN
     Route: 048
     Dates: start: 20181005
  8. OXYBUTYNIN. [Concomitant]
     Active Substance: OXYBUTYNIN CHLORIDE
     Indication: URINARY RETENTION
     Route: 048
  9. PROBIOTIC [Concomitant]
     Active Substance: PROBIOTICS NOS
  10. BRILINTA [Suspect]
     Active Substance: TICAGRELOR
     Indication: VASCULAR OCCLUSION
     Dosage: 90.0MG UNKNOWN
     Route: 048
     Dates: start: 20181004
  11. BRILINTA [Suspect]
     Active Substance: TICAGRELOR
     Indication: CATHETERISATION CARDIAC
     Dosage: 90.0MG UNKNOWN
     Route: 048
     Dates: start: 20181005
  12. SIMVASTATIN. [Concomitant]
     Active Substance: SIMVASTATIN
     Indication: BLOOD CHOLESTEROL ABNORMAL
     Route: 048
     Dates: start: 20181004
  13. POTASSIUM [Concomitant]
     Active Substance: POTASSIUM
  14. VITAMIN D3 [Concomitant]
     Active Substance: CHOLECALCIFEROL
     Route: 048
  15. BRILINTA [Suspect]
     Active Substance: TICAGRELOR
     Indication: STENT PLACEMENT
     Dosage: 90.0MG UNKNOWN
     Route: 048
     Dates: start: 20181005
  16. SINGULAIR [Concomitant]
     Active Substance: MONTELUKAST SODIUM
     Indication: HYPERSENSITIVITY
     Route: 048
  17. IBUPROFEN. [Concomitant]
     Active Substance: IBUPROFEN
     Indication: PAIN
     Route: 048
  18. DIFLUCAN [Concomitant]
     Active Substance: FLUCONAZOLE
     Indication: FUNGAL INFECTION
     Route: 048
  19. MSM [Concomitant]
     Active Substance: DIMETHYL SULFONE
     Indication: ARTHROPATHY
  20. TURMERIC [Concomitant]
     Active Substance: HERBALS\TURMERIC
  21. BRILINTA [Suspect]
     Active Substance: TICAGRELOR
     Indication: STENT PLACEMENT
     Dosage: 90.0MG UNKNOWN
     Route: 048
     Dates: start: 20181004
  22. BRILINTA [Suspect]
     Active Substance: TICAGRELOR
     Indication: CATHETERISATION CARDIAC
     Dosage: 90.0MG UNKNOWN
     Route: 048
     Dates: start: 20181004
  23. NISTATIN POWDER [Concomitant]
     Indication: ANTIFUNGAL TREATMENT
     Dosage: 1000.0G AS REQUIRED
  24. BIOTIN [Concomitant]
     Active Substance: BIOTIN
     Route: 048
  25. FISH OIL [Concomitant]
     Active Substance: FISH OIL
     Dosage: 1100 UNITS

REACTIONS (23)
  - Coronary artery occlusion [Unknown]
  - Chest discomfort [Not Recovered/Not Resolved]
  - Blood pressure abnormal [Unknown]
  - Increased tendency to bruise [Not Recovered/Not Resolved]
  - Pain [Not Recovered/Not Resolved]
  - Rib fracture [Recovered/Resolved]
  - Fungal infection [Unknown]
  - Pruritus [Unknown]
  - Gait disturbance [Recovered/Resolved]
  - Femur fracture [Recovered/Resolved]
  - Depression [Not Recovered/Not Resolved]
  - Asthenia [Not Recovered/Not Resolved]
  - Rash [Unknown]
  - Haemorrhagic diathesis [Not Recovered/Not Resolved]
  - Restlessness [Recovered/Resolved]
  - Arthritis [Not Recovered/Not Resolved]
  - Fatigue [Not Recovered/Not Resolved]
  - Road traffic accident [Recovered/Resolved]
  - Clavicle fracture [Recovered/Resolved]
  - Dyspnoea exertional [Not Recovered/Not Resolved]
  - Intentional product misuse [Unknown]
  - Osteomyelitis [Recovered/Resolved]
  - Insomnia [Recovered/Resolved]

NARRATIVE: CASE EVENT DATE: 200912
